FAERS Safety Report 4829541-X (Version None)
Quarter: 2005Q4

REPORT INFORMATION
  Report Type: 
  Country: None (occurrence: None)
  Receive Date: 20051116
  Receipt Date: 20051102
  Transmission Date: 20060501
  Serious: Yes (Death)
  Sender: FDA-Public Use
  Company Number: PHBS2005JP16188

PATIENT
  Age: 58 Year
  Sex: Male

DRUGS (4)
  1. SIMULECT [Suspect]
     Indication: RENAL TRANSPLANT
     Dosage: 20 MG INJECTION
     Route: 065
  2. NEORAL [Suspect]
     Indication: RENAL TRANSPLANT
     Route: 065
  3. CELLCEPT [Concomitant]
     Indication: RENAL TRANSPLANT
     Route: 065
  4. PREDNISOLONE [Concomitant]
     Indication: RENAL TRANSPLANT

REACTIONS (3)
  - EPSTEIN-BARR VIRUS INFECTION [None]
  - HISTIOCYTOSIS HAEMATOPHAGIC [None]
  - RESPIRATORY FAILURE [None]
